FAERS Safety Report 18972693 (Version 2)
Quarter: 2021Q1

REPORT INFORMATION
  Report Type: Report from Study
  Country: US (occurrence: US)
  Receive Date: 20210305
  Receipt Date: 20210330
  Transmission Date: 20210420
  Serious: Yes (Other)
  Sender: FDA-Public Use
  Company Number: US-MYLANLABS-2020M1088248

PATIENT
  Sex: Female
  Weight: 68 kg

DRUGS (9)
  1. CIPRO [Concomitant]
     Active Substance: CIPROFLOXACIN HYDROCHLORIDE
     Indication: KIDNEY INFECTION
     Dosage: 500 MILLIGRAM, BID
  2. GABAPENTIN. [Concomitant]
     Active Substance: GABAPENTIN
     Dosage: DAILY
  3. CYMBALTA [Concomitant]
     Active Substance: DULOXETINE HYDROCHLORIDE
     Dosage: DAILY
  4. GLATIRAMER ACETATE INJECTION [Suspect]
     Active Substance: GLATIRAMER ACETATE
     Dosage: 40 MILLIGRAM, 3XW
     Route: 058
     Dates: end: 20210210
  5. BACLOFEN. [Concomitant]
     Active Substance: BACLOFEN
     Dosage: DAILY
  6. VITAMIN D                          /00107901/ [Concomitant]
     Active Substance: ERGOCALCIFEROL
     Dosage: DAILY
  7. GLATIRAMER ACETATE INJECTION [Suspect]
     Active Substance: GLATIRAMER ACETATE
     Indication: RELAPSING-REMITTING MULTIPLE SCLEROSIS
     Dosage: 40 MILLIGRAM, 3XW (3 TIMES WEEKLY)
     Route: 058
     Dates: start: 202007
  8. WELLBUTRIN [Concomitant]
     Active Substance: BUPROPION HYDROCHLORIDE
     Dosage: DAILY
  9. VIVIAN                             /00372302/ [Concomitant]
     Dosage: DAILY

REACTIONS (14)
  - Urine odour abnormal [Unknown]
  - Kidney infection [Unknown]
  - Skin discolouration [Unknown]
  - Injection site pain [Unknown]
  - Product dose omission issue [Unknown]
  - Malaise [Unknown]
  - Injection site swelling [Unknown]
  - Decreased appetite [Unknown]
  - Injection site erythema [Unknown]
  - Injection site bruising [Unknown]
  - Chromaturia [Unknown]
  - Injection site mass [Unknown]
  - Weight increased [Unknown]
  - Alopecia [Unknown]
